FAERS Safety Report 11538788 (Version 3)
Quarter: 2015Q4

REPORT INFORMATION
  Report Type: Report from Study
  Country: US (occurrence: US)
  Receive Date: 20150923
  Receipt Date: 20151013
  Transmission Date: 20160304
  Serious: Yes (Other)
  Sender: FDA-Public Use
  Company Number: US-AMGEN-USASP2015096635

PATIENT
  Age: 53 Year
  Sex: Female

DRUGS (2)
  1. ENBREL [Suspect]
     Active Substance: ETANERCEPT
     Indication: PSORIASIS
     Dosage: 50 MG, UNK
     Route: 065
  2. ENBREL [Suspect]
     Active Substance: ETANERCEPT
     Indication: PSORIATIC ARTHROPATHY

REACTIONS (10)
  - Psoriasis [Unknown]
  - Pain in extremity [Unknown]
  - Erythema [Unknown]
  - Arthralgia [Unknown]
  - Sleep disorder [Unknown]
  - Hyperthermia [Unknown]
  - Gallbladder operation [Unknown]
  - Amino acid level decreased [Unknown]
  - Alpha-1 anti-trypsin deficiency [Unknown]
  - Sweat gland disorder [Unknown]

NARRATIVE: CASE EVENT DATE: 20150421
